FAERS Safety Report 6100012-6 (Version None)
Quarter: 2009Q1

REPORT INFORMATION
  Report Type: 
  Country: None (occurrence: None)
  Receive Date: 20090303
  Receipt Date: 20090225
  Transmission Date: 20090719
  Serious: Yes (Other)
  Sender: FDA-Public Use
  Company Number: A0771160A

PATIENT
  Age: 43 Year
  Sex: Male

DRUGS (3)
  1. PAXIL [Suspect]
     Indication: DEPRESSION
     Route: 065
  2. PROZAC [Suspect]
     Indication: DEPRESSION
     Route: 065
  3. CELEXA [Suspect]
     Indication: DEPRESSION
     Route: 065

REACTIONS (1)
  - CONVULSION [None]
